FAERS Safety Report 12068437 (Version 1)
Quarter: 2016Q1

REPORT INFORMATION
  Report Type: Spontaneous
  Country: US (occurrence: US)
  Receive Date: 20160211
  Receipt Date: 20160211
  Transmission Date: 20160526
  Serious: No
  Sender: FDA-Public Use
  Company Number: US-ALLERGAN-1518977US

PATIENT
  Age: 21 Year
  Sex: Female

DRUGS (2)
  1. BOTOX [Suspect]
     Active Substance: ONABOTULINUMTOXINA
     Dosage: 155 UNK, SINGLE
     Route: 030
     Dates: start: 20150821, end: 20150821
  2. BOTOX [Suspect]
     Active Substance: ONABOTULINUMTOXINA
     Indication: MIGRAINE
     Dosage: UNK, SINGLE
     Route: 030
     Dates: start: 20150521, end: 20150521

REACTIONS (3)
  - Head discomfort [Not Recovered/Not Resolved]
  - Tension headache [Not Recovered/Not Resolved]
  - Mononucleosis syndrome [Recovering/Resolving]

NARRATIVE: CASE EVENT DATE: 20150821
